FAERS Safety Report 23983402 (Version 1)
Quarter: 2024Q2

REPORT INFORMATION
  Report Type: Spontaneous
  Country: US (occurrence: US)
  Receive Date: 20240617
  Receipt Date: 20240617
  Transmission Date: 20240716
  Serious: No
  Sender: FDA-Public Use
  Company Number: US-JNJFOC-20240606383

PATIENT
  Age: 3 Year
  Sex: Male

DRUGS (1)
  1. TREMFYA [Suspect]
     Active Substance: GUSELKUMAB
     Indication: Colitis ulcerative
     Route: 065

REACTIONS (5)
  - Agitation [Unknown]
  - Needle issue [Unknown]
  - Device leakage [Unknown]
  - Product dose omission issue [Unknown]
  - Off label use [Unknown]
